FAERS Safety Report 8869056 (Version 1)
Quarter: 2012Q4

REPORT INFORMATION
  Report Type: 
  Country: US (occurrence: US)
  Receive Date: 20121027
  Receipt Date: 20121027
  Transmission Date: 20130627
  Serious: Yes (Other)
  Sender: FDA-Public Use
  Company Number: US-009507513-1210USA010075

PATIENT

DRUGS (2)
  1. RIBAVIRIN [Suspect]
     Indication: HEPATITIS C
     Dosage: UNK UNK,
  2. INTERFERON (UNSPECIFIED) [Suspect]
     Indication: HEPATITIS C

REACTIONS (3)
  - Deafness [Unknown]
  - Anaemia [Unknown]
  - Drug ineffective [Unknown]
